FAERS Safety Report 9370710 (Version 2)
Quarter: 2013Q3

REPORT INFORMATION
  Report Type: Spontaneous
  Country: DE (occurrence: FR)
  Receive Date: 20130626
  Receipt Date: 20130703
  Transmission Date: 20140515
  Serious: Yes (Other)
  Sender: FDA-Public Use
  Company Number: FR-FRI-1000046144

PATIENT
  Sex: Female
  Weight: 65 kg

DRUGS (6)
  1. MEMANTINE [Suspect]
     Indication: HYPOACUSIS
     Route: 048
     Dates: start: 1998
  2. MEMANTINE [Suspect]
     Indication: HYPOACUSIS
  3. DEROXAT [Concomitant]
     Indication: DEPRESSION
     Dosage: 1 DF
     Route: 048
     Dates: start: 20130227
  4. TEMESTA [Concomitant]
     Indication: ANXIETY
     Dosage: 1 DF
     Route: 048
     Dates: start: 20130227
  5. ESCITALOPRAM [Concomitant]
  6. BENZODIAZEPINE RELATED DRUGS [Concomitant]

REACTIONS (6)
  - Depression [Recovering/Resolving]
  - Abnormal behaviour [Recovering/Resolving]
  - Agitation [Recovering/Resolving]
  - Abdominal pain [Not Recovered/Not Resolved]
  - Off label use [Not Recovered/Not Resolved]
  - Drug dependence [Unknown]
